FAERS Safety Report 5257694-0 (Version None)
Quarter: 2007Q1

REPORT INFORMATION
  Report Type: 
  Country: None (occurrence: None)
  Receive Date: 20070307
  Receipt Date: 20070228
  Transmission Date: 20070707
  Serious: Yes (Hospitalization)
  Sender: FDA-Public Use
  Company Number: 2006UW22019

PATIENT
  Age: 490 Month
  Sex: Male
  Weight: 109.1 kg

DRUGS (1)
  1. SEROQUEL [Suspect]
     Indication: DEPRESSION
     Dosage: 25 MG, 100 MG
     Route: 048
     Dates: start: 20011214, end: 20050329

REACTIONS (2)
  - DIABETES MELLITUS [None]
  - RIB FRACTURE [None]
